FAERS Safety Report 15275550 (Version 1)
Quarter: 2018Q4

REPORT INFORMATION
  Report Type: Spontaneous
  Country: US (occurrence: US)
  Receive Date: 20180814
  Receipt Date: 20180814
  Transmission Date: 20190204
  Serious: Yes (Death, Other)
  Sender: FDA-Public Use
  Company Number: US-HIKMA PHARMACEUTICALS USA INC.-US-H14001-18-06853

PATIENT
  Age: 38 Year
  Sex: Male

DRUGS (6)
  1. ARGATROBAN. [Suspect]
     Active Substance: ARGATROBAN
     Indication: PULMONARY EMBOLISM
  2. DABIGATRAN [Suspect]
     Active Substance: DABIGATRAN
     Indication: DEEP VEIN THROMBOSIS
     Route: 065
  3. ARGATROBAN. [Suspect]
     Active Substance: ARGATROBAN
     Indication: DEEP VEIN THROMBOSIS
     Route: 065
  4. DABIGATRAN [Suspect]
     Active Substance: DABIGATRAN
     Indication: PULMONARY EMBOLISM
  5. APIXIBAN [Suspect]
     Active Substance: APIXABAN
     Indication: DEEP VEIN THROMBOSIS
     Route: 065
  6. APIXIBAN [Suspect]
     Active Substance: APIXABAN
     Indication: PULMONARY EMBOLISM

REACTIONS (8)
  - Haemoptysis [Unknown]
  - Pulseless electrical activity [Fatal]
  - Respiratory failure [Fatal]
  - Anaemia [Fatal]
  - Epistaxis [Unknown]
  - Drug resistance [Unknown]
  - Haemorrhage [Fatal]
  - Hypoxia [Unknown]
